FAERS Safety Report 12232080 (Version 3)
Quarter: 2016Q2

REPORT INFORMATION
  Report Type: Spontaneous
  Country: PL (occurrence: PL)
  Receive Date: 20160401
  Receipt Date: 20160422
  Transmission Date: 20160815
  Serious: Yes (Other)
  Sender: FDA-Public Use
  Company Number: PL-B.I. PHARMACEUTICALS,INC./RIDGEFIELD-2016-BI-20288YA

PATIENT
  Age: 90 Year
  Sex: Male

DRUGS (3)
  1. ACARD [Concomitant]
     Active Substance: ASPIRIN
     Indication: PRODUCT USED FOR UNKNOWN INDICATION
     Route: 065
  2. CIPRONEX [Suspect]
     Active Substance: CIPROFLOXACIN
     Indication: URINARY TRACT INFECTION
     Dosage: 1000 MG
     Route: 065
     Dates: start: 20160324, end: 20160329
  3. OMNIC OCAS [Suspect]
     Active Substance: TAMSULOSIN HYDROCHLORIDE
     Indication: LOWER URINARY TRACT SYMPTOMS
     Dosage: 0.4 MG
     Route: 048
     Dates: end: 20160330

REACTIONS (5)
  - Enuresis [Recovered/Resolved]
  - Micturition urgency [Recovered/Resolved]
  - Urinary tract infection [Recovered/Resolved]
  - Urinary retention [Recovered/Resolved]
  - Vertigo [Recovered/Resolved]

NARRATIVE: CASE EVENT DATE: 201603
